FAERS Safety Report 24359160 (Version 3)
Quarter: 2024Q4

REPORT INFORMATION
  Report Type: Spontaneous
  Country: FR (occurrence: FR)
  Receive Date: 20240924
  Receipt Date: 20241016
  Transmission Date: 20250115
  Serious: Yes (Other)
  Sender: PURDUE
  Company Number: FR-PURDUE-USA-2024-0312128

PATIENT
  Age: 31 Year
  Sex: Female

DRUGS (8)
  1. OXYCODONE HYDROCHLORIDE [Suspect]
     Active Substance: OXYCODONE HYDROCHLORIDE
     Indication: Analgesic intervention supportive therapy
     Dosage: 5 MILLIGRAM
     Route: 048
     Dates: start: 20240825
  2. CLINDAMYCIN HYDROCHLORIDE [Suspect]
     Active Substance: CLINDAMYCIN HYDROCHLORIDE
     Indication: Peritonitis
     Dosage: 600 MILLIGRAM
     Route: 042
     Dates: start: 20240824
  3. CEFOTAXIME SODIUM [Suspect]
     Active Substance: CEFOTAXIME SODIUM
     Indication: Peritonitis
     Dosage: 1 GRAM
     Route: 042
     Dates: start: 20240824, end: 20240830
  4. IOMERON [Suspect]
     Active Substance: IOMEPROL
     Indication: Scan
     Dosage: 2 DOSAGE FORM, {TOTAL}
     Route: 042
     Dates: start: 20240819, end: 20240824
  5. IOMERON [Suspect]
     Active Substance: IOMEPROL
     Dosage: 3 DOSAGE FORM, {TOTAL}
     Route: 042
     Dates: start: 20240819, end: 20240829
  6. METRONIDAZOLE [Suspect]
     Active Substance: METRONIDAZOLE
     Indication: Peritonitis
     Dosage: 500 MILLIGRAM
     Route: 042
     Dates: start: 20240819, end: 20240828
  7. ACETAMINOPHEN [Suspect]
     Active Substance: ACETAMINOPHEN
     Indication: Analgesic intervention supportive therapy
     Dosage: 1 GRAM
     Route: 042
     Dates: start: 20240818
  8. ENOXAPARIN SODIUM [Suspect]
     Active Substance: ENOXAPARIN SODIUM
     Indication: Thrombosis prophylaxis
     Dosage: 4000 INTERNATIONAL UNIT
     Route: 058
     Dates: start: 20240820

REACTIONS (2)
  - Rash maculo-papular [Not Recovered/Not Resolved]
  - Erythema [Not Recovered/Not Resolved]

NARRATIVE: CASE EVENT DATE: 20240830
